FAERS Safety Report 7820249-5 (Version None)
Quarter: 2011Q4

REPORT INFORMATION
  Report Type: 
  Country: None (occurrence: None)
  Receive Date: 20111018
  Receipt Date: 20111003
  Transmission Date: 20120403
  Serious: Yes (Other)
  Sender: FDA-Public Use
  Company Number: US-BAYER-2011-095480

PATIENT
  Age: 59 Year
  Sex: Female
  Weight: 65 kg

DRUGS (6)
  1. IMITREX [Concomitant]
  2. MAGNESIUM HYDROXIDE TAB [Suspect]
     Dosage: CONSUMER TOOK 1 TABLESPOON AT BEDTIME. BOTTLE COUNT 26 OZ
     Route: 048
     Dates: start: 20111001, end: 20111001
  3. CELEBREX [Concomitant]
  4. CHLORZOXAZONE [Concomitant]
  5. PROZAC [Concomitant]
  6. LYRICA [Concomitant]

REACTIONS (3)
  - VOMITING [None]
  - FAECES DISCOLOURED [None]
  - NAUSEA [None]
